FAERS Safety Report 7442309-3 (Version None)
Quarter: 2011Q2

REPORT INFORMATION
  Report Type: 
  Country: None (occurrence: None)
  Receive Date: 20110419
  Receipt Date: 20110330
  Transmission Date: 20111010
  Serious: Yes (Other)
  Sender: FDA-Public Use
  Company Number: 11-017

PATIENT
  Age: 88 Year
  Sex: Female

DRUGS (3)
  1. ACETYL SALICYLIC ACID USP BAT [Concomitant]
  2. LEVETIRACETAM [Suspect]
     Indication: COMPLEX PARTIAL SEIZURES
     Dosage: 500 MG Q12H; IV
     Route: 042
  3. HYDROCHLOROTHIAZIDE [Concomitant]

REACTIONS (6)
  - COMPLEX PARTIAL SEIZURES [None]
  - TRICUSPID VALVE INCOMPETENCE [None]
  - ATRIAL FIBRILLATION [None]
  - ELECTROCARDIOGRAM QT PROLONGED [None]
  - SINUS BRADYCARDIA [None]
  - DYSKINESIA [None]
